FAERS Safety Report 15470313 (Version 2)
Quarter: 2018Q4

REPORT INFORMATION
  Report Type: Spontaneous
  Country: NL (occurrence: NL)
  Receive Date: 20181005
  Receipt Date: 20181126
  Transmission Date: 20190205
  Serious: Yes (Life-Threatening, Hospitalization, Other)
  Sender: FDA-Public Use
  Company Number: PHHY2018NL111817

PATIENT
  Age: 61 Year
  Sex: Female

DRUGS (7)
  1. FLUOXETINE [Interacting]
     Active Substance: FLUOXETINE HYDROCHLORIDE
     Indication: PRODUCT USED FOR UNKNOWN INDICATION
     Dosage: 139 DF, UNK
     Route: 065
  2. PANTOPRAZOLE [Concomitant]
     Active Substance: PANTOPRAZOLE
     Indication: PROPHYLAXIS
     Dosage: 40 MG, UNK
     Route: 065
  3. RISPERIDONE. [Interacting]
     Active Substance: RISPERIDONE
     Indication: PRODUCT USED FOR UNKNOWN INDICATION
     Dosage: 6 DF, UNK
     Route: 065
  4. ZOLPIDEM [Suspect]
     Active Substance: ZOLPIDEM\ZOLPIDEM TARTRATE
     Indication: PRODUCT USED FOR UNKNOWN INDICATION
     Dosage: 40 DF, UNK
     Route: 065
  5. NAPROXEN. [Suspect]
     Active Substance: NAPROXEN
     Indication: PRODUCT USED FOR UNKNOWN INDICATION
     Dosage: 20 DF, UNK
     Route: 065
  6. CLEMASTINE [Suspect]
     Active Substance: CLEMASTINE
     Indication: PRODUCT USED FOR UNKNOWN INDICATION
     Dosage: 5 DF, UNK
     Route: 065
  7. BROMAZEPAM [Suspect]
     Active Substance: BROMAZEPAM
     Indication: PRODUCT USED FOR UNKNOWN INDICATION
     Dosage: 90 DF, UNK
     Route: 065

REACTIONS (15)
  - Leukocytosis [Recovering/Resolving]
  - Cardiac output decreased [Recovering/Resolving]
  - Circulatory collapse [Recovered/Resolved]
  - Fall [Recovering/Resolving]
  - Torsade de pointes [Recovered/Resolved]
  - Coordination abnormal [Recovering/Resolving]
  - Hypocalcaemia [Recovering/Resolving]
  - Microcytic anaemia [Recovering/Resolving]
  - Drug interaction [Recovering/Resolving]
  - Somnolence [Recovering/Resolving]
  - Intentional overdose [Recovering/Resolving]
  - Electrocardiogram QT prolonged [Recovering/Resolving]
  - Muscular weakness [Recovering/Resolving]
  - Toxicity to various agents [Recovering/Resolving]
  - Hypermagnesaemia [Recovering/Resolving]
